FAERS Safety Report 25651665 (Version 1)
Quarter: 2025Q3

REPORT INFORMATION
  Report Type: Spontaneous
  Country: US (occurrence: US)
  Receive Date: 20250806
  Receipt Date: 20250806
  Transmission Date: 20251021
  Serious: Yes (Other)
  Sender: AIPING PHARMACEUTICAL
  Company Number: US-AIPING-2025AILIT00109

PATIENT
  Age: 84 Year
  Sex: Female

DRUGS (2)
  1. HALOPERIDOL [Suspect]
     Active Substance: HALOPERIDOL
     Indication: Schizophrenia
     Route: 065
  2. ARIPIPRAZOLE [Suspect]
     Active Substance: ARIPIPRAZOLE
     Indication: Schizophrenia
     Route: 065

REACTIONS (6)
  - Thrombocytopenia [Recovering/Resolving]
  - Hypothermia [Recovered/Resolved]
  - Leukopenia [Recovering/Resolving]
  - Cogwheel rigidity [Recovered/Resolved]
  - Bradykinesia [Recovered/Resolved]
  - Product dose omission issue [Unknown]
